FAERS Safety Report 4425997-5 (Version None)
Quarter: 2004Q3

REPORT INFORMATION
  Report Type: 
  Country: None (occurrence: None)
  Receive Date: 20040719
  Receipt Date: 20040220
  Transmission Date: 20050211
  Serious: Yes (Hospitalization)
  Sender: FDA-Public Use
  Company Number: 180398

PATIENT
  Age: 60 Year
  Sex: Male
  Weight: 71.6683 kg

DRUGS (9)
  1. AVONEX [Suspect]
     Indication: MULTIPLE SCLEROSIS
     Dosage: 30 MCG QW; IM
     Route: 030
     Dates: start: 20020101, end: 20030901
  2. AVONEX [Suspect]
     Indication: MULTIPLE SCLEROSIS
     Dosage: 30 MCG QW; IM
     Route: 030
     Dates: start: 20030901
  3. AMANTADINE HCL [Concomitant]
  4. PRINIVIL [Concomitant]
  5. LANOXIN [Concomitant]
  6. ISOSORBIDE [Concomitant]
  7. ULTRAM [Concomitant]
  8. LISINOPRIL [Concomitant]
  9. DIGOXIN [Concomitant]

REACTIONS (5)
  - INFLUENZA LIKE ILLNESS [None]
  - MULTIPLE SCLEROSIS RELAPSE [None]
  - MUSCLE SPASMS [None]
  - PAIN EXACERBATED [None]
  - PLATELET COUNT INCREASED [None]
